FAERS Safety Report 23107766 (Version 2)
Quarter: 2023Q4

REPORT INFORMATION
  Report Type: Spontaneous
  Country: US (occurrence: US)
  Receive Date: 20231026
  Receipt Date: 20231107
  Transmission Date: 20240110
  Serious: Yes (Hospitalization)
  Sender: FDA-Public Use
  Company Number: US-MIRM-000318

PATIENT
  Age: 6 Year
  Sex: Female

DRUGS (10)
  1. LIVMARLI [Suspect]
     Active Substance: MARALIXIBAT CHLORIDE
     Indication: Alagille syndrome
     Dosage: 0.8 MILLILITER, BID
     Route: 048
     Dates: start: 20211228
  2. LIVMARLI [Suspect]
     Active Substance: MARALIXIBAT CHLORIDE
     Indication: Pruritus
     Dosage: 0.7 MILLILITER, QD
     Route: 048
     Dates: start: 20211018, end: 2021
  3. LIVMARLI [Suspect]
     Active Substance: MARALIXIBAT CHLORIDE
     Dosage: UNK UNK, BID
     Route: 048
     Dates: start: 202202, end: 2022
  4. URSODIOL [Concomitant]
     Active Substance: URSODIOL
     Indication: Product used for unknown indication
     Dosage: UNK
  5. RIFAMPIN [Concomitant]
     Active Substance: RIFAMPIN
     Indication: Product used for unknown indication
     Dosage: UNK
  6. VITAMIN K1 [Concomitant]
     Active Substance: PHYTONADIONE
     Indication: Product used for unknown indication
     Dosage: UNK
  7. AQUADEKS [BETACAROTENE;BIOTIN;CALCIUM PANTOTHENATE;COLECALCIFEROL;CYAN [Concomitant]
     Indication: Product used for unknown indication
     Dosage: UNK
  8. SILDENAFIL CITRATE [Concomitant]
     Active Substance: SILDENAFIL CITRATE
     Indication: Product used for unknown indication
     Dosage: UNK
  9. OMEPRAZOLE [Concomitant]
     Active Substance: OMEPRAZOLE
     Indication: Product used for unknown indication
     Dosage: UNK
  10. VITAMIN E [Concomitant]
     Active Substance: .ALPHA.-TOCOPHEROL
     Indication: Product used for unknown indication
     Dosage: UNK

REACTIONS (3)
  - Liver transplant [Unknown]
  - Pruritus [Unknown]
  - Therapeutic response decreased [Unknown]

NARRATIVE: CASE EVENT DATE: 20220201
